FAERS Safety Report 16716287 (Version 1)
Quarter: 2019Q4

REPORT INFORMATION
  Report Type: Spontaneous
  Country: US (occurrence: US)
  Receive Date: 20190818
  Receipt Date: 20190818
  Transmission Date: 20200122
  Serious: Yes (Other)
  Sender: FDA-Public Use
  Company Number: None

PATIENT
  Age: 72 Year
  Sex: Female
  Weight: 82.35 kg

DRUGS (2)
  1. ATORVASTATIN [Suspect]
     Active Substance: ATORVASTATIN
     Indication: BLOOD CHOLESTEROL
     Route: 048
     Dates: start: 20190809, end: 20190810
  2. CLOPIDOGREL [Suspect]
     Active Substance: CLOPIDOGREL BISULFATE
     Dates: start: 20190809, end: 20190810

REACTIONS (6)
  - Heart rate increased [None]
  - Vision blurred [None]
  - Rash [None]
  - Pruritus [None]
  - Asthenia [None]
  - Nausea [None]

NARRATIVE: CASE EVENT DATE: 20190809
